FAERS Safety Report 7199640-9 (Version None)
Quarter: 2010Q4

REPORT INFORMATION
  Report Type: 
  Country: None (occurrence: None)
  Receive Date: 20101214
  Receipt Date: 20101126
  Transmission Date: 20110411
  Serious: Yes (Hospitalization, Other)
  Sender: FDA-Public Use
  Company Number: UK-ACCORD-002083

PATIENT
  Age: 66 Year
  Sex: Male

DRUGS (9)
  1. AMLODIPINE [Suspect]
     Indication: PRODUCT USED FOR UNKNOWN INDICATION
  2. SIMVASTATIN [Suspect]
     Indication: PRODUCT USED FOR UNKNOWN INDICATION
     Dosage: 40.00-MG-2.00 PER
  3. ALPRAZOLAM [Suspect]
  4. GLICLAZIDE (GLICLAZIDE) [Concomitant]
  5. METFORMIN HCL [Concomitant]
  6. TOLPERISONE (TOLPERISONE) [Concomitant]
  7. NIFLUMIC ACID (NIFLUMIC ACID) [Concomitant]
  8. ASPIRIN [Concomitant]
  9. VALERIAAN (VALERIAAN) [Concomitant]

REACTIONS (11)
  - BLOOD CHOLESTEROL DECREASED [None]
  - BLOOD CHOLESTEROL INCREASED [None]
  - CARDIAC FAILURE [None]
  - DECUBITUS ULCER [None]
  - DRUG INTERACTION [None]
  - FLUID RETENTION [None]
  - GAIT DISTURBANCE [None]
  - HAEMODIALYSIS [None]
  - LEFT VENTRICULAR FAILURE [None]
  - RENAL FAILURE ACUTE [None]
  - RHABDOMYOLYSIS [None]
